FAERS Safety Report 10699872 (Version 3)
Quarter: 2015Q1

REPORT INFORMATION
  Report Type: Report from Study
  Country: US (occurrence: US)
  Receive Date: 20150109
  Receipt Date: 20150123
  Transmission Date: 20150721
  Serious: Yes (Other)
  Sender: FDA-Public Use
  Company Number: PHEH2014US026047

PATIENT
  Age: 68 Year
  Sex: Female

DRUGS (1)
  1. GILENYA [Suspect]
     Active Substance: FINGOLIMOD HYDROCHLORIDE
     Indication: PRODUCT USED FOR UNKNOWN INDICATION
     Dosage: 0.5 MG, QD
     Route: 065
     Dates: start: 20140612

REACTIONS (11)
  - Decreased activity [Unknown]
  - Dyspnoea [Unknown]
  - Phlebitis [Unknown]
  - Cognitive disorder [Unknown]
  - Gait disturbance [Unknown]
  - Multiple sclerosis relapse [Unknown]
  - Fatigue [Unknown]
  - Aphthous stomatitis [Unknown]
  - Sensory loss [Unknown]
  - Muscular weakness [Unknown]
  - Fall [Unknown]

NARRATIVE: CASE EVENT DATE: 201407
